FAERS Safety Report 6011057-9 (Version None)
Quarter: 2008Q4

REPORT INFORMATION
  Report Type: 
  Country: None (occurrence: None)
  Receive Date: 20081218
  Receipt Date: 20081215
  Transmission Date: 20090506
  Serious: Yes (Hospitalization)
  Sender: FDA-Public Use
  Company Number: US-GILEAD-2008-0019102

PATIENT
  Sex: Female
  Weight: 97.61 kg

DRUGS (10)
  1. LETAIRIS [Suspect]
     Indication: PULMONARY ARTERIAL HYPERTENSION
     Route: 048
     Dates: start: 20080904
  2. PLAVIX [Concomitant]
     Route: 048
  3. FOLIC ACID [Concomitant]
     Route: 048
  4. ZOCOR [Concomitant]
     Route: 048
  5. NEURONTIN [Concomitant]
     Route: 048
  6. ALLOPURINOL [Concomitant]
     Route: 048
  7. LASIX [Concomitant]
     Route: 048
  8. ISOSORB MONO [Concomitant]
     Route: 001
  9. MICARDIS [Concomitant]
     Route: 048
  10. NOVOLOG [Concomitant]
     Route: 058

REACTIONS (4)
  - ANAEMIA [None]
  - CELLULITIS [None]
  - DYSPNOEA [None]
  - INFECTION [None]
